FAERS Safety Report 8643117 (Version 2)
Quarter: 2012Q4

REPORT INFORMATION
  Report Type: 
  Country: AU (occurrence: AU)
  Receive Date: 20120629
  Receipt Date: 20121001
  Transmission Date: 20130627
  Serious: Yes (Hospitalization, Other)
  Sender: FDA-Public Use
  Company Number: AU-BRISTOL-MYERS SQUIBB COMPANY-16703738

PATIENT
  Age: 39 Year
  Sex: Male

DRUGS (2)
  1. REYATAZ [Suspect]
     Indication: HIV INFECTION
     Dosage: Duration: many years. Level under 50
     Route: 048
     Dates: start: 2010, end: 20120612
  2. KIVEXA [Suspect]
     Indication: HIV INFECTION
     Dosage: Duration: Many years

REACTIONS (4)
  - Pneumonia [Unknown]
  - Viral load increased [Unknown]
  - Diarrhoea [Unknown]
  - Vomiting [Unknown]
